FAERS Safety Report 23332530 (Version 1)
Quarter: 2023Q4

REPORT INFORMATION
  Report Type: Spontaneous
  Country: BR (occurrence: BR)
  Receive Date: 20231222
  Receipt Date: 20231222
  Transmission Date: 20240109
  Serious: Yes (Other)
  Sender: FDA-Public Use
  Company Number: BR-BAXTER-2023BAX036746

PATIENT
  Age: 38 Year
  Sex: Female

DRUGS (2)
  1. IRON [Suspect]
     Active Substance: IRON
     Indication: Anaemia
     Dosage: 200 MG DILUTED IN 500 ML OF SODIUM CHLORIDE, RUNNING SLOWLY FOR 2 HOURS, EVERY OTHER DAY, TOTALING 3
     Route: 042
  2. SODIUM CHLORIDE [Suspect]
     Active Substance: SODIUM CHLORIDE
     Indication: Medication dilution
     Dosage: 500 ML USED TO DILUTE 200 MG SUCROFER, RUNNING SLOWLY FOR 2 HOURS, EVERY OTHER DAY, TOTALING 3 APPLI
     Route: 042

REACTIONS (3)
  - Tachycardia [Recovered/Resolved]
  - Chest pain [Recovered/Resolved]
  - Erythema [Recovered/Resolved]

NARRATIVE: CASE EVENT DATE: 20231117
